FAERS Safety Report 5918505 (Version 1)
Quarter: 2020Q3

REPORT INFORMATION
  Report Type: Report from Study
  Country: US (occurrence: US)
  Receive Date: 20051107
  Receipt Date: 20051107
  Transmission Date: 20201104
  Serious: Yes (Hospitalization, Other)
  Sender: FDA-Public Use
  Company Number: US-JNJFOC-20051005483

PATIENT
  Age: 79 Year
  Sex: Female
  Weight: 55.8 kg

DRUGS (6)
  1. CISAPRIDE [Suspect]
     Active Substance: CISAPRIDE
     Route: 048
  2. CISAPRIDE [Suspect]
     Active Substance: CISAPRIDE
     Route: 048
  3. COUMADIN [Concomitant]
     Active Substance: WARFARIN SODIUM
     Indication: PROPHYLAXIS
  4. LEVOTHYROXINE. [Concomitant]
     Active Substance: LEVOTHYROXINE
     Indication: HYPOTHYROIDISM
  5. DETROL LA [Concomitant]
     Active Substance: TOLTERODINE TARTRATE
     Route: 048
  6. AMITRIPTYLINE [Concomitant]
     Active Substance: AMITRIPTYLINE
     Route: 048

REACTIONS (10)
  - Pneumonia [Recovered/Resolved]
  - Immobile [None]
  - Non-small cell lung cancer [None]
  - Asthenia [Recovered/Resolved]
  - Contusion [None]
  - Dyspepsia [None]
  - Urinary tract infection [Recovered/Resolved]
  - Dehydration [None]
  - Rhabdomyolysis [None]
  - Escherichia infection [None]

NARRATIVE: CASE EVENT DATE: 20051004
